FAERS Safety Report 6585310-4 (Version None)
Quarter: 2010Q1

REPORT INFORMATION
  Report Type: 
  Country: None (occurrence: None)
  Receive Date: 20100216
  Receipt Date: 20100216
  Transmission Date: 20100710
  Serious: No
  Sender: FDA-Public Use
  Company Number: None

PATIENT
  Age: 18 Year
  Sex: Female
  Weight: 78.4723 kg

DRUGS (1)
  1. CRYSELLE [Suspect]
     Indication: CONTRACEPTION
     Dosage: 1 TAB PO DAILY
     Route: 048
     Dates: start: 20100110

REACTIONS (3)
  - HEADACHE [None]
  - IRRITABILITY [None]
  - PRODUCT SUBSTITUTION ISSUE [None]
